FAERS Safety Report 16372198 (Version 1)
Quarter: 2019Q2

REPORT INFORMATION
  Report Type: Spontaneous
  Country: AR (occurrence: AR)
  Receive Date: 20190530
  Receipt Date: 20190530
  Transmission Date: 20190711
  Serious: Yes (Other)
  Sender: FDA-Public Use
  Company Number: AR-PFIZER INC-2019227688

PATIENT
  Age: 68 Year
  Sex: Male

DRUGS (1)
  1. SUTENT [Suspect]
     Active Substance: SUNITINIB MALATE
     Indication: RENAL CANCER
     Dosage: 50 MG, CYCLIC (SCHEMA 4/2 REST)
     Dates: start: 20190108

REACTIONS (3)
  - Genital haemorrhage [Unknown]
  - White blood cell count decreased [Unknown]
  - Blister [Unknown]

NARRATIVE: CASE EVENT DATE: 20190513
